FAERS Safety Report 18303601 (Version 1)
Quarter: 2020Q3

REPORT INFORMATION
  Report Type: Report from Study
  Country: US (occurrence: US)
  Receive Date: 20200923
  Receipt Date: 20200923
  Transmission Date: 20201103
  Serious: Yes (Other)
  Sender: FDA-Public Use
  Company Number: US-JNJFOC-A-US2020-207590

PATIENT
  Age: 30 Year
  Sex: Female
  Weight: 77.1 kg

DRUGS (5)
  1. UPTRAVI [Suspect]
     Active Substance: SELEXIPAG
     Dosage: 400MCG IN MORNING AND 600MCG IN THE EVENING
     Route: 048
  2. BUMEX [Concomitant]
     Active Substance: BUMETANIDE
  3. UPTRAVI [Suspect]
     Active Substance: SELEXIPAG
     Indication: PULMONARY ARTERIAL HYPERTENSION
     Dosage: 200 MCG, BID
     Route: 048
  4. OPSUMIT [Suspect]
     Active Substance: MACITENTAN
     Indication: PULMONARY ARTERIAL HYPERTENSION
     Dosage: 10 MG, QD
     Route: 048
  5. UPTRAVI [Suspect]
     Active Substance: SELEXIPAG
     Route: 048

REACTIONS (22)
  - Fluid retention [Unknown]
  - Oedema peripheral [Unknown]
  - Fatigue [Unknown]
  - Vomiting [Unknown]
  - Tremor [Unknown]
  - Headache [Unknown]
  - Diarrhoea [Unknown]
  - Arthralgia [Unknown]
  - Hyperhidrosis [Unknown]
  - Weight increased [Unknown]
  - Blood pressure increased [Unknown]
  - Dyspnoea [Unknown]
  - Myalgia [Unknown]
  - Nausea [Unknown]
  - Pain in extremity [Unknown]
  - Dizziness [Unknown]
  - Hypopnoea [Unknown]
  - Tunnel vision [Unknown]
  - Abdominal distension [Unknown]
  - Pain in jaw [Unknown]
  - Skin swelling [Unknown]
  - Asthenia [Unknown]

NARRATIVE: CASE EVENT DATE: 20200901
